FAERS Safety Report 15398530 (Version 2)
Quarter: 2018Q4

REPORT INFORMATION
  Report Type: Report from Study
  Country: DE (occurrence: DE)
  Receive Date: 20180918
  Receipt Date: 20181002
  Transmission Date: 20190204
  Serious: Yes (Hospitalization)
  Sender: FDA-Public Use
  Company Number: PHHY2018DE094073

PATIENT

DRUGS (1)
  1. ENTRESTO [Suspect]
     Active Substance: SACUBITRIL\VALSARTAN
     Indication: CARDIAC FAILURE CHRONIC
     Dosage: 1 DF (49/51 MG), QD
     Route: 065
     Dates: start: 20170511

REACTIONS (2)
  - Product prescribing error [Unknown]
  - Gastric cancer [Recovered/Resolved]

NARRATIVE: CASE EVENT DATE: 20180712
